FAERS Safety Report 4497249-9 (Version None)
Quarter: 2004Q3

REPORT INFORMATION
  Report Type: 
  Country: None (occurrence: None)
  Receive Date: 20040927
  Receipt Date: 20040721
  Transmission Date: 20050211
  Serious: No
  Sender: FDA-Public Use
  Company Number: USA040773243

PATIENT
  Age: 12 Year
  Sex: Male
  Weight: 30 kg

DRUGS (1)
  1. STRATTERA [Suspect]
     Indication: ATTENTION DEFICIT/HYPERACTIVITY DISORDER
     Dosage: 60 MG DAY
     Dates: start: 20040621

REACTIONS (5)
  - FATIGUE [None]
  - HEADACHE [None]
  - NAUSEA [None]
  - PRESCRIBED OVERDOSE [None]
  - SOMNOLENCE [None]
